FAERS Safety Report 7342967-8 (Version None)
Quarter: 2011Q1

REPORT INFORMATION
  Report Type: 
  Country: None (occurrence: None)
  Receive Date: 20110310
  Receipt Date: 20110225
  Transmission Date: 20110831
  Serious: Yes (Hospitalization)
  Sender: FDA-Public Use
  Company Number: PHHY2011US16105

PATIENT
  Sex: Female
  Weight: 53 kg

DRUGS (11)
  1. KEPPRA [Concomitant]
     Dosage: UNK
  2. TRILEPTAL [Concomitant]
     Dosage: UNK
  3. ZONEGRAN [Concomitant]
     Dosage: UNK
  4. LEVAQUIN [Concomitant]
  5. EXJADE [Suspect]
     Indication: SICKLE CELL ANAEMIA
     Dosage: 1500 MG DAILY
     Route: 048
     Dates: start: 20080201
  6. VITAMIN D [Concomitant]
     Dosage: UNK
  7. ASCORBIC ACID [Concomitant]
     Dosage: UNK
  8. PRILOSEC [Concomitant]
     Dosage: UNK
  9. PREDNISONE TAB [Concomitant]
     Dosage: UNK
  10. CALCIUM [Concomitant]
     Dosage: UNK
  11. MIRALAX [Concomitant]
     Dosage: UNK

REACTIONS (3)
  - MUSCULOSKELETAL CHEST PAIN [None]
  - CONSTIPATION [None]
  - SPLENOMEGALY [None]
